FAERS Safety Report 20226944 (Version 6)
Quarter: 2024Q1

REPORT INFORMATION
  Report Type: Report from Study
  Country: US (occurrence: US)
  Receive Date: 20211224
  Receipt Date: 20240209
  Transmission Date: 20240410
  Serious: Yes (Disabling, Other)
  Sender: FDA-Public Use
  Company Number: US-HORIZON THERAPEUTICS-HZN-2021-009870

PATIENT

DRUGS (19)
  1. TEPEZZA [Suspect]
     Active Substance: TEPROTUMUMAB-TRBW
     Indication: Endocrine ophthalmopathy
     Dosage: UNK (FIRST INFUSION)
     Route: 042
     Dates: start: 202006
  2. TEPEZZA [Suspect]
     Active Substance: TEPROTUMUMAB-TRBW
     Indication: Graves^ disease
     Dosage: UNK (LAST INFUSION)
     Route: 042
     Dates: start: 202009
  3. TEPEZZA [Suspect]
     Active Substance: TEPROTUMUMAB-TRBW
     Dosage: UNK (INFUSION)
     Route: 042
     Dates: start: 2021
  4. TEPEZZA [Suspect]
     Active Substance: TEPROTUMUMAB-TRBW
     Dosage: UNK (2ND INFUSION)
     Route: 042
  5. TEPEZZA [Suspect]
     Active Substance: TEPROTUMUMAB-TRBW
     Dosage: 2000 MG (20MG/KG)
     Route: 065
  6. TEPEZZA [Suspect]
     Active Substance: TEPROTUMUMAB-TRBW
     Dosage: 1980 MG
     Route: 065
  7. TEPEZZA [Suspect]
     Active Substance: TEPROTUMUMAB-TRBW
     Dosage: 2000 (20MG/KG)
     Route: 065
  8. TEPEZZA [Suspect]
     Active Substance: TEPROTUMUMAB-TRBW
     Dosage: 2000 MG (20MG/KG)
     Route: 065
  9. TEPEZZA [Suspect]
     Active Substance: TEPROTUMUMAB-TRBW
     Dosage: 2000 MG (20MG/KG)
     Route: 065
  10. VIBERZI [Concomitant]
     Active Substance: ELUXADOLINE
     Route: 065
  11. ARMOUR THYROID [Concomitant]
     Active Substance: THYROID, PORCINE
  12. LISINOPRIL AND HYDROCHLOROTHIAZIDE [Concomitant]
     Active Substance: HYDROCHLOROTHIAZIDE\LISINOPRIL
  13. PRED FORTE [Concomitant]
     Active Substance: PREDNISOLONE ACETATE
  14. TIROSINT [Concomitant]
     Active Substance: LEVOTHYROXINE SODIUM
  15. VITAMIN B COMPLEX [Concomitant]
     Active Substance: CYANOCOBALAMIN\DEXPANTHENOL\NIACINAMIDE\PYRIDOXINE HYDROCHLORIDE\RIBOFLAVIN 5^-PHOSPHATE SODIUM\THIA
  16. CLONAZEPAM [Concomitant]
     Active Substance: CLONAZEPAM
     Dosage: 0.5 MG, QD
     Route: 048
  17. VITAMINS [Concomitant]
     Active Substance: VITAMINS
  18. TADALAFIL [Concomitant]
     Active Substance: TADALAFIL
  19. VITAMIN C [Concomitant]
     Active Substance: ASCORBIC ACID

REACTIONS (14)
  - Physical disability [Unknown]
  - Disability [Unknown]
  - Deafness bilateral [Unknown]
  - Pain [Unknown]
  - Anxiety [Unknown]
  - Condition aggravated [Unknown]
  - General physical health deterioration [Unknown]
  - Tinnitus [Unknown]
  - Fatigue [Unknown]
  - Diarrhoea [Unknown]
  - Muscle spasms [Unknown]
  - Vision blurred [Unknown]
  - Injury [Unknown]
  - Economic problem [Unknown]

NARRATIVE: CASE EVENT DATE: 20200101
